FAERS Safety Report 17662637 (Version 1)
Quarter: 2020Q2

REPORT INFORMATION
  Report Type: Spontaneous
  Country: CH (occurrence: CH)
  Receive Date: 20200413
  Receipt Date: 20200413
  Transmission Date: 20200713
  Serious: No
  Sender: FDA-Public Use
  Company Number: CH-LEXICON PHARMACEUTICALS, INC-20-1606-00268

PATIENT
  Age: 74 Year
  Sex: Male

DRUGS (8)
  1. VOTRIENT [Concomitant]
     Active Substance: PAZOPANIB HYDROCHLORIDE
     Indication: PAIN
     Dosage: FIRST 1X 200MG DAILY, THEN INCREASE TO 1X 400MG
     Route: 048
     Dates: start: 20190814
  2. XARELTO [Concomitant]
     Active Substance: RIVAROXABAN
     Dosage: 20 MG ORALLY FOR MANY YEARS
     Route: 048
  3. XGEVA [Concomitant]
     Active Substance: DENOSUMAB
     Route: 058
  4. SOMATULIN [Concomitant]
     Active Substance: LANREOTIDE ACETATE
     Route: 058
  5. XERMELO [Suspect]
     Active Substance: TELOTRISTAT ETHYL
     Indication: CARCINOID SYNDROME
     Dates: start: 20191023, end: 20200122
  6. BISOPROLOL MEPHA [Concomitant]
     Dosage: 5 MG ORALLY ONCE A DAY FOR MANY YEARS
     Route: 048
  7. RAMIPRIL MEPHA [Concomitant]
     Dosage: 10 MG ORALLY ONCE A DAY FOR MANY YEARS
     Route: 048
  8. ATORVASTATIN SPIRIG HC [Concomitant]
     Dosage: 40 MG ORALLY FOR MANY YEARS
     Route: 048

REACTIONS (2)
  - Back pain [Recovered/Resolved]
  - Musculoskeletal pain [Recovered/Resolved]

NARRATIVE: CASE EVENT DATE: 20191024
